FAERS Safety Report 24202413 (Version 1)
Quarter: 2024Q3

REPORT INFORMATION
  Report Type: Spontaneous
  Country: CA (occurrence: CA)
  Receive Date: 20240813
  Receipt Date: 20240813
  Transmission Date: 20241017
  Serious: Yes (Other)
  Sender: JOHNSON AND JOHNSON
  Company Number: CA-JNJFOC-20240823955

PATIENT
  Age: 25 Year
  Sex: Female

DRUGS (2)
  1. REMICADE [Suspect]
     Active Substance: INFLIXIMAB
     Indication: Crohn^s disease
     Route: 041
  2. FERRIC DERISOMALTOSE [Suspect]
     Active Substance: FERRIC DERISOMALTOSE
     Indication: Crohn^s disease
     Route: 065

REACTIONS (11)
  - Abdominal pain [Unknown]
  - Asthenia [Unknown]
  - Burning sensation [Unknown]
  - Diarrhoea [Unknown]
  - Drug ineffective [Unknown]
  - Fatigue [Unknown]
  - Frequent bowel movements [Unknown]
  - Herpes zoster [Unknown]
  - Inflammation [Unknown]
  - Infusion related reaction [Unknown]
  - Muscle spasms [Unknown]
